FAERS Safety Report 9663474 (Version 6)
Quarter: 2014Q1

REPORT INFORMATION
  Report Type: Spontaneous
  Country: US (occurrence: US)
  Receive Date: 20131101
  Receipt Date: 20140219
  Transmission Date: 20141002
  Serious: Yes (Other)
  Sender: FDA-Public Use
  Company Number: US-TEVA-441552USA

PATIENT
  Sex: Female
  Weight: 69.46 kg

DRUGS (21)
  1. OXYBUTYNIN [Suspect]
     Dates: start: 20130901
  2. TOVIAZ [Suspect]
  3. TRIAMTERENE AND HYDROCHLOROTHIAZIDE [Concomitant]
     Indication: HYPERTENSION
     Dosage: 75/50 MG, DAILY
  4. MORPHINE ER [Concomitant]
     Dosage: 2X/DAY
  5. NEXIUM [Concomitant]
     Indication: GASTROOESOPHAGEAL REFLUX DISEASE
     Dosage: 50 MILLIGRAM DAILY;
  6. ESOMEPRAZOLE [Concomitant]
     Indication: GASTROOESOPHAGEAL REFLUX DISEASE
     Dosage: 50 MILLIGRAM DAILY;
  7. DIAZEPAM [Concomitant]
  8. XELJANZ [Concomitant]
  9. OXYCODONE [Concomitant]
  10. KETOCONAZOLE [Concomitant]
     Route: 061
  11. IPRATROPIUM BROMIDE W/SALBUTAMOL [Concomitant]
  12. TRIAMCINOLONE ACETONIDE [Concomitant]
     Route: 061
  13. ZOFRAN [Concomitant]
  14. LANSOPRAZOLE [Concomitant]
  15. NEOMYCIN SULFATE/POLYMYXIN B SULFATE [Concomitant]
  16. VENTOLIN [Concomitant]
  17. PROMETHAZINE [Concomitant]
  18. OXYCODONE [Concomitant]
  19. ESCITALOPRAM [Concomitant]
  20. DILAUDID [Concomitant]
  21. DULCOLAX [Concomitant]

REACTIONS (5)
  - Bladder prolapse [Unknown]
  - Drug ineffective [Unknown]
  - Urinary incontinence [Recovered/Resolved]
  - Pollakiuria [Recovered/Resolved]
  - Micturition disorder [Recovered/Resolved]
